FAERS Safety Report 12317937 (Version 1)
Quarter: 2016Q2

REPORT INFORMATION
  Report Type: Spontaneous
  Country: US (occurrence: None)
  Receive Date: 20160428
  Receipt Date: 20160428
  Transmission Date: 20160815
  Serious: No
  Sender: FDA-Public Use
  Company Number: None

PATIENT
  Sex: Female

DRUGS (2)
  1. CAPEACITABINE 150 MG TABLET PFIZER U.S. [Suspect]
     Active Substance: CAPECITABINE
     Indication: BREAST CANCER FEMALE
     Route: 048
     Dates: start: 201510
  2. CAPECITABINE 500 MG TABLET PFIZER U.S. [Suspect]
     Active Substance: CAPECITABINE
     Dosage: DAYS 1-14 OF A 21 DAY CYCLE

REACTIONS (1)
  - Tenderness [None]
